FAERS Safety Report 23734813 (Version 1)
Quarter: 2024Q2

REPORT INFORMATION
  Report Type: Spontaneous
  Country: FR (occurrence: FR)
  Receive Date: 20240412
  Receipt Date: 20240412
  Transmission Date: 20240716
  Serious: Yes (Disabling)
  Sender: FDA-Public Use
  Company Number: None

PATIENT
  Age: 61 Year
  Sex: Female
  Weight: 64 kg

DRUGS (55)
  1. METHOTREXATE [Suspect]
     Active Substance: METHOTREXATE
     Indication: B-cell type acute leukaemia
     Route: 037
     Dates: start: 20181210, end: 20181210
  2. METHOTREXATE [Suspect]
     Active Substance: METHOTREXATE
     Indication: B-cell type acute leukaemia
     Route: 037
     Dates: start: 20181203, end: 20181203
  3. METHOTREXATE [Suspect]
     Active Substance: METHOTREXATE
     Indication: B-cell type acute leukaemia
     Route: 037
     Dates: start: 20180918, end: 20180918
  4. METHOTREXATE [Suspect]
     Active Substance: METHOTREXATE
     Indication: B-cell type acute leukaemia
     Route: 037
     Dates: start: 20180525, end: 20180525
  5. METHOTREXATE [Suspect]
     Active Substance: METHOTREXATE
     Indication: B-cell type acute leukaemia
     Route: 037
     Dates: start: 20180910, end: 20180910
  6. METHOTREXATE [Suspect]
     Active Substance: METHOTREXATE
     Indication: B-cell type acute leukaemia
     Route: 037
     Dates: start: 20180802, end: 20180802
  7. METHOTREXATE [Suspect]
     Active Substance: METHOTREXATE
     Indication: B-cell type acute leukaemia
     Route: 037
     Dates: start: 20180724, end: 20180724
  8. METHOTREXATE [Suspect]
     Active Substance: METHOTREXATE
     Indication: B-cell type acute leukaemia
     Route: 037
     Dates: start: 20180522, end: 20180522
  9. METHOTREXATE [Suspect]
     Active Substance: METHOTREXATE
     Indication: B-cell type acute leukaemia
     Route: 037
     Dates: start: 20181112, end: 20181112
  10. METHOTREXATE [Suspect]
     Active Substance: METHOTREXATE
     Indication: B-cell type acute leukaemia
     Route: 037
     Dates: start: 20180601, end: 20180601
  11. DEPO-MEDROL [Concomitant]
     Active Substance: METHYLPREDNISOLONE ACETATE
     Indication: B-cell type acute leukaemia
     Route: 037
     Dates: start: 20180724, end: 20180724
  12. DEPO-MEDROL [Concomitant]
     Active Substance: METHYLPREDNISOLONE ACETATE
     Indication: B-cell type acute leukaemia
     Route: 037
     Dates: start: 20181203, end: 20181203
  13. DEPO-MEDROL [Concomitant]
     Active Substance: METHYLPREDNISOLONE ACETATE
     Indication: B-cell type acute leukaemia
     Route: 037
     Dates: start: 20181112, end: 20181112
  14. DEPO-MEDROL [Concomitant]
     Active Substance: METHYLPREDNISOLONE ACETATE
     Indication: B-cell type acute leukaemia
     Route: 037
     Dates: start: 20180601, end: 20180601
  15. DEPO-MEDROL [Concomitant]
     Active Substance: METHYLPREDNISOLONE ACETATE
     Indication: B-cell type acute leukaemia
     Route: 037
     Dates: start: 20180918, end: 20180918
  16. DEPO-MEDROL [Concomitant]
     Active Substance: METHYLPREDNISOLONE ACETATE
     Indication: B-cell type acute leukaemia
     Route: 037
     Dates: start: 20181210, end: 20181210
  17. DEPO-MEDROL [Concomitant]
     Active Substance: METHYLPREDNISOLONE ACETATE
     Indication: B-cell type acute leukaemia
     Route: 037
     Dates: start: 20180802, end: 20180802
  18. DEPO-MEDROL [Concomitant]
     Active Substance: METHYLPREDNISOLONE ACETATE
     Indication: B-cell type acute leukaemia
     Route: 037
     Dates: start: 20180525, end: 20180525
  19. DEPO-MEDROL [Concomitant]
     Active Substance: METHYLPREDNISOLONE ACETATE
     Indication: B-cell type acute leukaemia
     Route: 037
     Dates: start: 20180910, end: 20180910
  20. DAUNORUBICIN [Concomitant]
     Active Substance: DAUNORUBICIN
     Indication: B-cell type acute leukaemia
     Route: 042
     Dates: start: 20180608, end: 20180619
  21. DAUNORUBICIN [Concomitant]
     Active Substance: DAUNORUBICIN
     Indication: B-cell type acute leukaemia
     Route: 042
     Dates: start: 20181003, end: 20181030
  22. DAUNORUBICIN [Concomitant]
     Active Substance: DAUNORUBICIN
     Indication: B-cell type acute leukaemia
     Route: 042
     Dates: start: 20180525, end: 20180607
  23. VINCRISTINE [Suspect]
     Active Substance: VINCRISTINE
     Indication: B-cell type acute leukaemia
     Route: 042
     Dates: start: 20181003, end: 20181030
  24. VINCRISTINE [Suspect]
     Active Substance: VINCRISTINE
     Indication: B-cell type acute leukaemia
     Route: 042
     Dates: start: 20180904, end: 20180910
  25. VINCRISTINE [Suspect]
     Active Substance: VINCRISTINE
     Indication: B-cell type acute leukaemia
     Route: 042
     Dates: start: 20181127, end: 20181203
  26. VINCRISTINE [Suspect]
     Active Substance: VINCRISTINE
     Indication: B-cell type acute leukaemia
     Route: 042
     Dates: start: 20180608, end: 20180619
  27. VINCRISTINE [Suspect]
     Active Substance: VINCRISTINE
     Indication: B-cell type acute leukaemia
     Dosage: VINCRISTINE SULFATE
     Route: 042
     Dates: start: 20180525, end: 20180607
  28. VINCRISTINE [Suspect]
     Active Substance: VINCRISTINE
     Indication: B-cell type acute leukaemia
     Route: 042
     Dates: start: 20180718, end: 20180724
  29. ETOPOSIDE [Concomitant]
     Active Substance: ETOPOSIDE
     Indication: B-cell type acute leukaemia
     Route: 042
     Dates: start: 20180802, end: 20180803
  30. ETOPOSIDE [Concomitant]
     Active Substance: ETOPOSIDE
     Indication: B-cell type acute leukaemia
     Route: 042
     Dates: start: 20180918, end: 20180919
  31. ETOPOSIDE [Concomitant]
     Active Substance: ETOPOSIDE
     Indication: B-cell type acute leukaemia
     Route: 042
     Dates: start: 20181210, end: 20181211
  32. CYCLOPHOSPHAMIDE [Suspect]
     Active Substance: CYCLOPHOSPHAMIDE
     Indication: B-cell type acute leukaemia
     Route: 042
     Dates: start: 20180918, end: 20180919
  33. CYCLOPHOSPHAMIDE [Suspect]
     Active Substance: CYCLOPHOSPHAMIDE
     Indication: B-cell type acute leukaemia
     Route: 042
     Dates: start: 20180802, end: 20180803
  34. CYCLOPHOSPHAMIDE [Suspect]
     Active Substance: CYCLOPHOSPHAMIDE
     Indication: B-cell type acute leukaemia
     Route: 042
     Dates: start: 20181003, end: 20181030
  35. CYCLOPHOSPHAMIDE [Suspect]
     Active Substance: CYCLOPHOSPHAMIDE
     Indication: B-cell type acute leukaemia
     Route: 042
     Dates: start: 20181210, end: 20181211
  36. CYCLOPHOSPHAMIDE [Suspect]
     Active Substance: CYCLOPHOSPHAMIDE
     Indication: B-cell type acute leukaemia
     Route: 042
     Dates: start: 20180525, end: 20180607
  37. CYCLOPHOSPHAMIDE [Suspect]
     Active Substance: CYCLOPHOSPHAMIDE
     Indication: B-cell type acute leukaemia
     Route: 042
     Dates: start: 20180608, end: 20180619
  38. ASPARAGINASE [Concomitant]
     Active Substance: ASPARAGINASE
     Indication: B-cell type acute leukaemia
     Route: 042
     Dates: start: 20180525, end: 20180607
  39. ASPARAGINASE [Concomitant]
     Active Substance: ASPARAGINASE
     Indication: B-cell type acute leukaemia
     Route: 042
     Dates: start: 20181003, end: 20181030
  40. ASPARAGINASE [Concomitant]
     Active Substance: ASPARAGINASE
     Indication: B-cell type acute leukaemia
     Route: 042
     Dates: start: 20180608, end: 20180619
  41. DEXAMETHASONE [Concomitant]
     Active Substance: DEXAMETHASONE
     Indication: B-cell type acute leukaemia
     Route: 042
     Dates: start: 20180821, end: 20180822
  42. DEXAMETHASONE [Concomitant]
     Active Substance: DEXAMETHASONE
     Indication: B-cell type acute leukaemia
     Route: 042
     Dates: start: 20181112, end: 20181113
  43. DEXAMETHASONE [Concomitant]
     Active Substance: DEXAMETHASONE
     Indication: B-cell type acute leukaemia
     Route: 042
     Dates: start: 20180627, end: 20180628
  44. CYTARABINE [Suspect]
     Active Substance: CYTARABINE
     Indication: B-cell type acute leukaemia
     Route: 037
     Dates: start: 20180910, end: 20180910
  45. CYTARABINE [Suspect]
     Active Substance: CYTARABINE
     Indication: B-cell type acute leukaemia
     Route: 037
     Dates: start: 20180601, end: 20180601
  46. CYTARABINE [Suspect]
     Active Substance: CYTARABINE
     Indication: B-cell type acute leukaemia
     Route: 037
     Dates: start: 20180918, end: 20180918
  47. CYTARABINE [Suspect]
     Active Substance: CYTARABINE
     Indication: B-cell type acute leukaemia
     Route: 042
     Dates: start: 20180627, end: 20180628
  48. CYTARABINE [Suspect]
     Active Substance: CYTARABINE
     Indication: B-cell type acute leukaemia
     Route: 037
     Dates: start: 20181203, end: 20181203
  49. CYTARABINE [Suspect]
     Active Substance: CYTARABINE
     Indication: B-cell type acute leukaemia
     Route: 037
     Dates: start: 20180724, end: 20180724
  50. CYTARABINE [Suspect]
     Active Substance: CYTARABINE
     Indication: B-cell type acute leukaemia
     Route: 037
     Dates: start: 20181210, end: 20181210
  51. CYTARABINE [Suspect]
     Active Substance: CYTARABINE
     Indication: B-cell type acute leukaemia
     Route: 037
     Dates: start: 20181112, end: 20181112
  52. CYTARABINE [Suspect]
     Active Substance: CYTARABINE
     Indication: B-cell type acute leukaemia
     Route: 042
     Dates: start: 20180821, end: 20180822
  53. CYTARABINE [Suspect]
     Active Substance: CYTARABINE
     Indication: B-cell type acute leukaemia
     Route: 042
     Dates: start: 20181112, end: 20181113
  54. CYTARABINE [Suspect]
     Active Substance: CYTARABINE
     Indication: B-cell type acute leukaemia
     Route: 037
     Dates: start: 20180802, end: 20180802
  55. CYTARABINE [Suspect]
     Active Substance: CYTARABINE
     Indication: B-cell type acute leukaemia
     Route: 037
     Dates: start: 20180525, end: 20180525

REACTIONS (2)
  - Polyneuropathy [Not Recovered/Not Resolved]
  - Peripheral sensorimotor neuropathy [Not Recovered/Not Resolved]

NARRATIVE: CASE EVENT DATE: 20180101
